FAERS Safety Report 7229509-2 (Version None)
Quarter: 2011Q1

REPORT INFORMATION
  Report Type: 
  Country: None (occurrence: None)
  Receive Date: 20110117
  Receipt Date: 20100219
  Transmission Date: 20110831
  Serious: No
  Sender: FDA-Public Use
  Company Number: US-TYCO HEALTHCARE/MALLINCKRODT-T201000689

PATIENT
  Sex: Male

DRUGS (1)
  1. OPTIRAY 350 [Suspect]
     Indication: COMPUTERISED TOMOGRAM
     Dosage: 113 ML, SINGLE
     Route: 042
     Dates: start: 20100219, end: 20100219

REACTIONS (3)
  - SWELLING FACE [None]
  - RASH [None]
  - EYE SWELLING [None]
